FAERS Safety Report 4613279-8 (Version None)
Quarter: 2005Q1

REPORT INFORMATION
  Report Type: 
  Country: None (occurrence: None)
  Receive Date: 20050315
  Receipt Date: 20030320
  Transmission Date: 20050727
  Serious: Yes (Hospitalization)
  Sender: FDA-Public Use
  Company Number: 5034

PATIENT
  Age: 48 Year
  Sex: Female

DRUGS (6)
  1. MIDAZOLAM HCL [Suspect]
     Dosage: IV
     Route: 042
  2. ROPIVACAINE HYDROCHLORIDE [Suspect]
     Dosage: INJ
  3. CALCIUM ASCORBATE [Concomitant]
  4. ROYAL JELLY [Concomitant]
  5. PASSIFLORA EXTRACT [Concomitant]
  6. CHRISTE TREE [Concomitant]

REACTIONS (4)
  - CONVULSION [None]
  - HYPERTENSION [None]
  - SYNCOPE [None]
  - TACHYCARDIA [None]
